FAERS Safety Report 4854985-X (Version None)
Quarter: 2005Q4

REPORT INFORMATION
  Report Type: 
  Country: None (occurrence: None)
  Receive Date: 20051214
  Receipt Date: 20051122
  Transmission Date: 20060501
  Serious: Yes (Other)
  Sender: FDA-Public Use
  Company Number: GB-2005-026304

PATIENT

DRUGS (1)
  1. CAMPATH [Suspect]

REACTIONS (2)
  - AUTOIMMUNE DISORDER [None]
  - THYROID DISORDER [None]
